FAERS Safety Report 22040794 (Version 1)
Quarter: 2023Q1

REPORT INFORMATION
  Report Type: Spontaneous
  Country: US (occurrence: None)
  Receive Date: 20230225
  Receipt Date: 20230225
  Transmission Date: 20230418
  Serious: Yes (Other)
  Sender: FDA-Public Use
  Company Number: None

PATIENT
  Age: 9 Year
  Sex: Female
  Weight: 33.75 kg

DRUGS (1)
  1. CANTHARIDIN [Suspect]
     Active Substance: CANTHARIDIN

REACTIONS (2)
  - Seizure [None]
  - Overdose [None]

NARRATIVE: CASE EVENT DATE: 20230209
